FAERS Safety Report 13116491 (Version 2)
Quarter: 2017Q1

REPORT INFORMATION
  Report Type: Spontaneous
  Country: TW (occurrence: TW)
  Receive Date: 20170116
  Receipt Date: 20170208
  Transmission Date: 20170428
  Serious: Yes (Other)
  Sender: FDA-Public Use
  Company Number: TW-SUN PHARMACEUTICAL INDUSTRIES LTD-2017RR-131355

PATIENT
  Sex: Male

DRUGS (9)
  1. OLANZAPINE. [Suspect]
     Active Substance: OLANZAPINE
     Dosage: 10 MG, DAILY
     Route: 048
  2. LITHIUM. [Concomitant]
     Active Substance: LITHIUM
     Indication: BIPOLAR I DISORDER
     Dosage: 900 MG, DAILY; 600 MG/DAY TO 1200 MG/DAY SINCE 1990
     Route: 065
  3. RISPERDAL CONSTA 25 MG [Concomitant]
     Indication: SCHIZOAFFECTIVE DISORDER
     Dosage: 1 DF, WEEKLY
     Route: 030
     Dates: start: 20131204
  4. RISPERIDONE. [Concomitant]
     Active Substance: RISPERIDONE
     Indication: SCHIZOAFFECTIVE DISORDER
     Dosage: 3 MG, DAILY
     Route: 048
     Dates: start: 20131211
  5. LITHIUM. [Concomitant]
     Active Substance: LITHIUM
     Dosage: 600 MG, DAILY; 600 MG/DAY TO 1200 MG/DAY SINCE 1990
     Route: 048
     Dates: start: 1990
  6. LITHIUM. [Concomitant]
     Active Substance: LITHIUM
     Dosage: 600 MG, DAILY
     Route: 048
     Dates: start: 1990
  7. OLANZAPINE. [Suspect]
     Active Substance: OLANZAPINE
     Indication: SCHIZOAFFECTIVE DISORDER
     Dosage: 20 MG, DAILY
     Route: 048
     Dates: end: 20131212
  8. OLANZAPINE. [Suspect]
     Active Substance: OLANZAPINE
     Dosage: 5 MG/DAY TO 15 MG/DAY
     Route: 048
     Dates: start: 20110201
  9. LITHIUM. [Concomitant]
     Active Substance: LITHIUM
     Indication: SCHIZOAFFECTIVE DISORDER
     Dosage: 900 MG, DAILY; 600 MG/DAY TO 1200 MG/DAY SINCE 1990
     Route: 065

REACTIONS (1)
  - Diabetes mellitus inadequate control [Unknown]
